FAERS Safety Report 26217808 (Version 1)
Quarter: 2025Q4

REPORT INFORMATION
  Report Type: Spontaneous
  Country: US (occurrence: US)
  Receive Date: 20251231
  Receipt Date: 20251231
  Transmission Date: 20260118
  Serious: No
  Sender: BAYER HEALTHCARE LLC
  Company Number: US-BAYER-2025A170011

PATIENT

DRUGS (2)
  1. ALEVE [Suspect]
     Active Substance: NAPROXEN SODIUM
     Indication: Arthralgia
     Route: 065
  2. ALEVE [Suspect]
     Active Substance: NAPROXEN SODIUM
     Indication: Back pain

REACTIONS (1)
  - Renal disorder [Unknown]
